FAERS Safety Report 5606258-5 (Version None)
Quarter: 2008Q1

REPORT INFORMATION
  Report Type: 
  Country: None (occurrence: None)
  Receive Date: 20080129
  Receipt Date: 20070403
  Transmission Date: 20080703
  Serious: No
  Sender: FDA-Public Use
  Company Number: A0645766A

PATIENT
  Age: 70 Year
  Sex: Female

DRUGS (3)
  1. WELLBUTRIN [Suspect]
     Indication: DEPRESSION
     Dosage: 75MG PER DAY
     Route: 048
     Dates: start: 20070101, end: 20070327
  2. NEXIUM [Concomitant]
  3. SANDOSTATIN [Concomitant]

REACTIONS (2)
  - ENERGY INCREASED [None]
  - SERUM SEROTONIN INCREASED [None]
